FAERS Safety Report 8595885-1 (Version None)
Quarter: 2012Q3

REPORT INFORMATION
  Report Type: 
  Country: None (occurrence: None)
  Receive Date: 20120807
  Receipt Date: 20120807
  Transmission Date: 20120928
  Serious: Yes (Other)
  Sender: FDA-Public Use
  Company Number: None

PATIENT
  Age: 73 Year
  Sex: Female
  Weight: 50.8029 kg

DRUGS (2)
  1. PICATO [Suspect]
     Indication: ACTINIC KERATOSIS
     Dosage: 0.05 % 1 DAY CHEST ; 0.05 % 2ND DAY CHEST
     Dates: start: 20120708
  2. PICATO [Suspect]
     Indication: ACTINIC KERATOSIS
     Dosage: 0.05 % 1 DAY CHEST ; 0.05 % 2ND DAY CHEST
     Dates: start: 20120709

REACTIONS (4)
  - APPLICATION SITE PAIN [None]
  - APPLICATION SITE SWELLING [None]
  - APPLICATION SITE SCAB [None]
  - APPLICATION SITE PRURITUS [None]
